FAERS Safety Report 5415145-7 (Version None)
Quarter: 2007Q3

REPORT INFORMATION
  Report Type: 
  Country: None (occurrence: None)
  Receive Date: 20070815
  Receipt Date: 20070627
  Transmission Date: 20080115
  Serious: No
  Sender: FDA-Public Use
  Company Number: A0661334A

PATIENT
  Age: 80 Year
  Sex: Male

DRUGS (7)
  1. COREG CR [Suspect]
     Dosage: 10MG PER DAY
     Route: 048
     Dates: start: 20070101, end: 20070625
  2. ALTACE [Concomitant]
  3. ALLOPURINOL [Concomitant]
  4. SPIRONOLACTONE [Concomitant]
  5. FLOMAX [Concomitant]
  6. SIMVASTATIN [Concomitant]
  7. COREG [Concomitant]
     Dosage: 3.125MG TWICE PER DAY
     Route: 048
     Dates: end: 20070101

REACTIONS (2)
  - DIARRHOEA [None]
  - FLATULENCE [None]
